FAERS Safety Report 15593553 (Version 1)
Quarter: 2018Q4

REPORT INFORMATION
  Report Type: Spontaneous
  Country: IN (occurrence: IN)
  Receive Date: 20181106
  Receipt Date: 20181106
  Transmission Date: 20190205
  Serious: Yes (Other)
  Sender: FDA-Public Use
  Company Number: IN-PURDUE-CAN-2018-0009180

PATIENT
  Age: 11 Year
  Sex: Male
  Weight: 28 kg

DRUGS (2)
  1. NON-PMN METHYLPHENIDATE HYDROCHLORIDE [Suspect]
     Active Substance: METHYLPHENIDATE HYDROCHLORIDE
     Indication: INTELLECTUAL DISABILITY
     Dosage: 20 MG, DAILY
     Route: 065
  2. NON-PMN METHYLPHENIDATE HYDROCHLORIDE [Suspect]
     Active Substance: METHYLPHENIDATE HYDROCHLORIDE
     Indication: ATTENTION DEFICIT/HYPERACTIVITY DISORDER
     Dosage: 10 MG, DAILY
     Route: 065

REACTIONS (4)
  - Decreased appetite [Unknown]
  - Impaired self-care [Unknown]
  - Insomnia [Unknown]
  - Acute psychosis [Recovered/Resolved]
